FAERS Safety Report 5181710-8 (Version None)
Quarter: 2006Q4

REPORT INFORMATION
  Report Type: 
  Country: None (occurrence: None)
  Receive Date: 20061220
  Receipt Date: 20060228
  Transmission Date: 20070319
  Serious: No
  Sender: FDA-Public Use
  Company Number: US-GLAXOSMITHKLINE-A0595460A

PATIENT
  Age: 46 Year

DRUGS (3)
  1. COMMIT [Suspect]
     Dates: start: 20060210
  2. NICODERM CQ [Suspect]
  3. NICODERM CQ [Suspect]

REACTIONS (9)
  - APPLICATION SITE ERYTHEMA [None]
  - APPLICATION SITE URTICARIA [None]
  - DEHYDRATION [None]
  - DRY MOUTH [None]
  - DRY SKIN [None]
  - LIP HAEMORRHAGE [None]
  - NAIL BED BLEEDING [None]
  - NAIL DISORDER [None]
  - PRURITUS [None]
